FAERS Safety Report 6936583-7 (Version None)
Quarter: 2010Q3

REPORT INFORMATION
  Report Type: 
  Country: None (occurrence: None)
  Receive Date: 20100823
  Receipt Date: 20100813
  Transmission Date: 20110219
  Serious: Yes (Death, Other)
  Sender: FDA-Public Use
  Company Number: US-ROCHE-716095

PATIENT
  Sex: Female
  Weight: 61 kg

DRUGS (9)
  1. HERCEPTIN [Suspect]
     Route: 042
     Dates: start: 20091001, end: 20100616
  2. HERCEPTIN [Suspect]
     Dosage: THERAPY HELD
     Route: 042
     Dates: end: 20100702
  3. ZOMETA [Concomitant]
     Dates: start: 20060401, end: 20100707
  4. AROMASIN [Concomitant]
     Dates: start: 20060401, end: 20100701
  5. FASLODEX [Concomitant]
     Dates: start: 20090901, end: 20100101
  6. TAXOTERE [Concomitant]
  7. NAVELBINE [Concomitant]
  8. ABRAXANE [Concomitant]
  9. FIORINAL [Concomitant]

REACTIONS (5)
  - CARDIAC FAILURE [None]
  - CARDIOMYOPATHY [None]
  - DEATH [None]
  - EJECTION FRACTION DECREASED [None]
  - RESPIRATORY FAILURE [None]
